FAERS Safety Report 4567576-5 (Version None)
Quarter: 2005Q1

REPORT INFORMATION
  Report Type: 
  Country: None (occurrence: None)
  Receive Date: 20050118
  Receipt Date: 20040720
  Transmission Date: 20050727
  Serious: Yes (Hospitalization, Other)
  Sender: FDA-Public Use
  Company Number: HQWYE288321JUL04

PATIENT
  Age: 66 Year
  Sex: Female
  Weight: 59.02 kg

DRUGS (3)
  1. PREMPRO [Suspect]
     Indication: MENOPAUSAL SYMPTOMS
     Dosage: DAILY, ORAL
     Route: 048
     Dates: end: 20021201
  2. CALCIUM WITH VITAMIN D (CALCIUM PHOSPHATE/CALCIUM SODIUM LACTATE/ERGOC [Concomitant]
  3. VERELAN (VERAPAMIL HYDROCHLORIDE) [Concomitant]

REACTIONS (1)
  - PULMONARY EMBOLISM [None]
